FAERS Safety Report 12998703 (Version 1)
Quarter: 2016Q4

REPORT INFORMATION
  Report Type: Spontaneous
  Country: FR (occurrence: FR)
  Receive Date: 20161205
  Receipt Date: 20161205
  Transmission Date: 20170207
  Serious: Yes (Hospitalization)
  Sender: FDA-Public Use
  Company Number: FR-ROCHE-1859473

PATIENT
  Age: 47 Year
  Sex: Female

DRUGS (6)
  1. MEKINIST [Concomitant]
     Active Substance: TRAMETINIB DIMETHYL SULFOXIDE
  2. FENTANYL. [Concomitant]
     Active Substance: FENTANYL
  3. DERMOVAL (FRANCE) [Concomitant]
  4. COTELLIC [Suspect]
     Active Substance: COBIMETINIB
     Indication: METASTATIC MALIGNANT MELANOMA
     Dosage: 3 WEEKS OUT OF 4
     Route: 048
     Dates: start: 20160107, end: 20160114
  5. ZELBORAF [Suspect]
     Active Substance: VEMURAFENIB
     Indication: METASTATIC MALIGNANT MELANOMA
     Route: 048
     Dates: start: 20160107, end: 20160421
  6. COTELLIC [Suspect]
     Active Substance: COBIMETINIB
     Dosage: 3 WEEKS OUT OF 4
     Route: 048
     Dates: start: 20160114, end: 20160421

REACTIONS (3)
  - Arthralgia [Recovered/Resolved]
  - Panniculitis [Not Recovered/Not Resolved]
  - Hypersensitivity vasculitis [Recovered/Resolved]

NARRATIVE: CASE EVENT DATE: 20160110
